FAERS Safety Report 7523173-0 (Version None)
Quarter: 2011Q2

REPORT INFORMATION
  Report Type: 
  Country: None (occurrence: None)
  Receive Date: 20110603
  Receipt Date: 20110520
  Transmission Date: 20111010
  Serious: Yes (Hospitalization)
  Sender: FDA-Public Use
  Company Number: JP-PFIZER INC-2011119610

PATIENT
  Age: 72 Year
  Sex: Male
  Weight: 69.8 kg

DRUGS (7)
  1. ALVESCO [Suspect]
     Indication: ASTHMA
     Dosage: 200 UG, 1X/DAY
     Route: 048
  2. BLINDED THERAPY [Suspect]
     Indication: ACUTE CORONARY SYNDROME
     Dosage: BLINDED THERAPY
     Route: 048
     Dates: start: 20110301, end: 20110520
  3. OLMESARTAN MEDOXOMIL [Suspect]
     Indication: HYPERTENSION
     Dosage: 10 MG, 1X/DAY
     Route: 048
     Dates: start: 20110302, end: 20110520
  4. SITAGLIPTIN PHOSPHATE [Suspect]
     Indication: DIABETES MELLITUS
     Dosage: 25 MG, 1X/DAY
     Route: 048
     Dates: start: 20110304, end: 20110520
  5. LIPITOR [Suspect]
     Indication: DYSLIPIDAEMIA
     Dosage: 10 MG, 1X/DAY
     Route: 048
     Dates: start: 20110302, end: 20110518
  6. LANSOPRAZOLE [Suspect]
     Indication: GASTRITIS PROPHYLAXIS
     Dosage: 15 MG, 1X/DAY
     Route: 048
     Dates: start: 20110302, end: 20110523
  7. ASPIRIN [Suspect]
     Indication: ANGINA UNSTABLE
     Dosage: 100 MG, 1X/DAY
     Route: 048
     Dates: start: 20110301

REACTIONS (1)
  - DRUG ERUPTION [None]
